FAERS Safety Report 5331599-9 (Version None)
Quarter: 2007Q2

REPORT INFORMATION
  Report Type: 
  Country: None (occurrence: None)
  Receive Date: 20070522
  Receipt Date: 20070510
  Transmission Date: 20071010
  Serious: Yes (Hospitalization)
  Sender: FDA-Public Use
  Company Number: FR-PFIZER INC-2007038753

PATIENT
  Age: 39 Year
  Sex: Female

DRUGS (1)
  1. CHAMPIX [Suspect]

REACTIONS (4)
  - ABDOMINAL PAIN [None]
  - ALCOHOL PROBLEM [None]
  - ANOREXIA [None]
  - INAPPROPRIATE AFFECT [None]
